FAERS Safety Report 24898744 (Version 8)
Quarter: 2025Q2

REPORT INFORMATION
  Report Type: Report from Study
  Country: FR (occurrence: FR)
  Receive Date: 20250129
  Receipt Date: 20250623
  Transmission Date: 20250716
  Serious: Yes (Death, Hospitalization, Other)
  Sender: TAKEDA
  Company Number: FR-TAKEDA-2025TUS006282

PATIENT
  Age: 54 Year
  Sex: Female

DRUGS (16)
  1. TEDUGLUTIDE [Suspect]
     Active Substance: TEDUGLUTIDE
     Indication: Short-bowel syndrome
     Dosage: 2.4 MILLIGRAM, QD
     Dates: start: 20170221, end: 20241202
  2. TEDUGLUTIDE [Suspect]
     Active Substance: TEDUGLUTIDE
  3. TEDUGLUTIDE [Suspect]
     Active Substance: TEDUGLUTIDE
  4. TEDUGLUTIDE [Suspect]
     Active Substance: TEDUGLUTIDE
  5. AMOXICILLIN [Concomitant]
     Active Substance: AMOXICILLIN
     Indication: Vascular device infection
     Dosage: 1 GRAM, BID
     Dates: start: 20231204, end: 20231210
  6. AMOXICILLIN [Concomitant]
     Active Substance: AMOXICILLIN
     Dosage: 500 GRAM, BID
     Dates: start: 20240109, end: 20240119
  7. CHOLECALCIFEROL [Concomitant]
     Active Substance: CHOLECALCIFEROL
     Indication: Osteoporosis
     Dosage: 50001 INTERNATIONAL UNIT, MONTHLY
     Dates: start: 20240131
  8. Spasfon [Concomitant]
     Indication: Abdominal pain
     Dosage: 40 MILLIGRAM, BID
     Dates: start: 20160801
  9. TRANXENE [Concomitant]
     Active Substance: CLORAZEPATE DIPOTASSIUM
     Indication: Depression
     Dosage: 10 MILLIGRAM, BID
     Dates: start: 20160218
  10. INIPOMP [Concomitant]
     Active Substance: PANTOPRAZOLE SODIUM
     Indication: Malabsorption
     Dosage: UNK UNK, QD
     Dates: start: 20160801
  11. INIPOMP [Concomitant]
     Active Substance: PANTOPRAZOLE SODIUM
     Dosage: 4500 INTERNATIONAL UNIT, QD
     Dates: start: 202502
  12. ASCORBIC ACID [Concomitant]
     Active Substance: ASCORBIC ACID
     Indication: Asthenia
     Dosage: 500 MILLIGRAM, BID
     Dates: start: 20160819
  13. BROMAZEPAM [Concomitant]
     Active Substance: BROMAZEPAM
     Indication: Depression
     Dosage: 1.5 MILLIGRAM, TID
     Dates: start: 20160521
  14. CALCIUM CARBONATE [Concomitant]
     Active Substance: CALCIUM CARBONATE
     Indication: Osteoporosis
     Dosage: 500 MILLIGRAM, QD
     Dates: start: 20240131
  15. PHLOROGLUCINOL [Concomitant]
     Active Substance: PHLOROGLUCINOL
     Indication: Abdominal pain
     Dosage: 400 MILLIGRAM, BID
     Dates: start: 20160801
  16. INNOHEP [Concomitant]
     Active Substance: TINZAPARIN SODIUM
     Indication: Venous thrombosis
     Dosage: 4500 INTERNATIONAL UNIT, QD
     Dates: start: 201502

REACTIONS (2)
  - Melanoma recurrent [Fatal]
  - Anaemia [Recovered/Resolved]

NARRATIVE: CASE EVENT DATE: 20240903
